FAERS Safety Report 7482910-4 (Version None)
Quarter: 2011Q2

REPORT INFORMATION
  Report Type: 
  Country: None (occurrence: None)
  Receive Date: 20110516
  Receipt Date: 20110510
  Transmission Date: 20111010
  Serious: Yes (Other)
  Sender: FDA-Public Use
  Company Number: US-PFIZER INC-2011100426

PATIENT
  Sex: Female
  Weight: 57.143 kg

DRUGS (2)
  1. CHANTIX [Suspect]
     Indication: SMOKING CESSATION THERAPY
     Dosage: 0.5 MG, 1X/DAY
     Route: 048
     Dates: start: 20110503, end: 20110507
  2. NAPROXEN (ALEVE) [Concomitant]
     Dosage: UNK

REACTIONS (5)
  - HYPOAESTHESIA ORAL [None]
  - RESPIRATORY DISTRESS [None]
  - SWOLLEN TONGUE [None]
  - DRUG HYPERSENSITIVITY [None]
  - PHARYNGEAL OEDEMA [None]
